FAERS Safety Report 23970483 (Version 1)
Quarter: 2024Q2

REPORT INFORMATION
  Report Type: Spontaneous
  Country: US (occurrence: US)
  Receive Date: 20240613
  Receipt Date: 20240613
  Transmission Date: 20240716
  Serious: No
  Sender: FDA-Public Use
  Company Number: US-AMGEN-USASP2024116390

PATIENT
  Sex: Male

DRUGS (1)
  1. PROLIA [Suspect]
     Active Substance: DENOSUMAB
     Indication: Hypercalcaemia of malignancy
     Dosage: 60 MILLIGRAM, UNK
     Route: 065

REACTIONS (1)
  - Off label use [Unknown]
